FAERS Safety Report 13496368 (Version 2)
Quarter: 2020Q3

REPORT INFORMATION
  Report Type: Spontaneous
  Country: FR (occurrence: FR)
  Receive Date: 20170428
  Receipt Date: 20200814
  Transmission Date: 20201102
  Serious: Yes (Hospitalization, Disabling, Congenital Anomaly, Other)
  Sender: FDA-Public Use
  Company Number: FR-ABBVIE-17P-056-1958020-00

PATIENT
  Age: 8 Year
  Sex: Female

DRUGS (1)
  1. DEPAKINE CHRONO [Suspect]
     Active Substance: VALPROATE SODIUM
     Indication: MATERNAL EXPOSURE TIMING UNSPECIFIED
     Route: 064

REACTIONS (8)
  - Congenital central nervous system anomaly [Unknown]
  - Sleep disorder [Recovering/Resolving]
  - Neuropathic muscular atrophy [Unknown]
  - Psychomotor retardation [Not Recovered/Not Resolved]
  - Disabled relative [Unknown]
  - Behaviour disorder [Unknown]
  - Foetal exposure during pregnancy [Unknown]
  - Hypotonia [Recovering/Resolving]

NARRATIVE: CASE EVENT DATE: 2010
